FAERS Safety Report 14289413 (Version 4)
Quarter: 2018Q1

REPORT INFORMATION
  Report Type: Report from Study
  Country: US (occurrence: US)
  Receive Date: 20171214
  Receipt Date: 20180314
  Transmission Date: 20180509
  Serious: Yes (Death, Hospitalization)
  Sender: FDA-Public Use
  Company Number: US-ACTELION-A-NJ2017-148583

PATIENT
  Age: 39 Year
  Sex: Male
  Weight: 83.9 kg

DRUGS (3)
  1. OPSUMIT [Suspect]
     Active Substance: MACITENTAN
     Indication: PULMONARY HYPERTENSION
     Dosage: 10 MG, QD
     Route: 048
     Dates: start: 20150916
  2. SILDENAFIL. [Concomitant]
     Active Substance: SILDENAFIL
  3. TRAMADOL. [Concomitant]
     Active Substance: TRAMADOL

REACTIONS (8)
  - Respiratory distress [Unknown]
  - Acute respiratory failure [Fatal]
  - Chest pain [Recovering/Resolving]
  - Systemic scleroderma [Fatal]
  - Dyspnoea exertional [Recovering/Resolving]
  - Respiratory failure [Unknown]
  - Condition aggravated [Unknown]
  - Interstitial lung disease [Fatal]
